FAERS Safety Report 8434757-X (Version None)
Quarter: 2012Q2

REPORT INFORMATION
  Report Type: 
  Country: None (occurrence: None)
  Receive Date: 20120323
  Receipt Date: 20110531
  Transmission Date: 20120825
  Serious: Yes (Other)
  Sender: FDA-Public Use
  Company Number: 163-21880-11060212

PATIENT
  Age: 51 Year
  Sex: Female
  Weight: 81.6475 kg

DRUGS (7)
  1. BORTEZOMIDE (BORTEZOMIB) [Concomitant]
  2. MS (MORPHINE SULFATE) (TABLETS) [Concomitant]
  3. DEXAMETHASONE [Concomitant]
  4. REVLIMID [Suspect]
     Indication: MULTIPLE MYELOMA
     Dosage: 25 MG, 1 IN 1 D, PO
     Route: 048
     Dates: start: 20110401
  5. AROMASIN [Concomitant]
  6. FENTANYL DISC [Concomitant]
  7. MULTIVITAMIN [Concomitant]

REACTIONS (1)
  - THROMBOSIS [None]
